FAERS Safety Report 6898907-9 (Version None)
Quarter: 2010Q3

REPORT INFORMATION
  Report Type: 
  Country: None (occurrence: None)
  Receive Date: 20100802
  Receipt Date: 20071213
  Transmission Date: 20110219
  Serious: No
  Sender: FDA-Public Use
  Company Number: US-PFIZER INC-2007092205

PATIENT
  Sex: Female
  Weight: 108.4 kg

DRUGS (12)
  1. LYRICA [Suspect]
     Indication: FIBROMYALGIA
     Dates: start: 20071004
  2. ROZEREM [Concomitant]
  3. ULTRAM [Concomitant]
  4. XANAX [Concomitant]
  5. PIROXICAM [Concomitant]
  6. ATENOLOL [Concomitant]
  7. LISINOPRIL [Concomitant]
  8. NORETHINDRONE [Concomitant]
  9. ESTRATEST H.S. [Concomitant]
  10. MEDROXYPROGESTERONE [Concomitant]
  11. CLONIDINE [Concomitant]
  12. CYMBALTA [Concomitant]

REACTIONS (2)
  - DRUG INEFFECTIVE [None]
  - INCORRECT DOSE ADMINISTERED [None]
